FAERS Safety Report 4842909-0 (Version None)
Quarter: 2005Q4

REPORT INFORMATION
  Report Type: 
  Country: None (occurrence: None)
  Receive Date: 20051129
  Receipt Date: 20051116
  Transmission Date: 20060501
  Serious: Yes (Hospitalization)
  Sender: FDA-Public Use
  Company Number: GXKR2005GB01978

PATIENT
  Age: 79 Year
  Sex: Female

DRUGS (16)
  1. TRAMADOL HCL [Suspect]
     Indication: ANALGESIC EFFECT
     Dosage: 50 - 100 MG, QID
  2. INDAMAPIDE [Concomitant]
  3. ATENOLOL [Concomitant]
  4. VALSARTAN [Concomitant]
  5. PARACETAMOL [Concomitant]
  6. TIAPROFENIC ACID [Concomitant]
  7. PARACETAMOL [Concomitant]
  8. FENTANYL [Concomitant]
  9. PROPOFOL [Concomitant]
  10. BUPIVACAINE [Concomitant]
  11. DIAMORPHINE [Concomitant]
  12. ONDANSETRON [Concomitant]
  13. DEXAMETHASONE [Concomitant]
  14. CYCLIZINE [Concomitant]
  15. HARTMANN'S SOLUTION (CALCIUM CHLORIDE DIHYDRATE, POTASSIUM CHLORIDE, S [Concomitant]
  16. SALINE (SODIUM CHLORIDE) [Concomitant]

REACTIONS (10)
  - ABDOMINAL PAIN [None]
  - CHEST PAIN [None]
  - CONFUSIONAL STATE [None]
  - DEHYDRATION [None]
  - FEELING ABNORMAL [None]
  - GRAND MAL CONVULSION [None]
  - INAPPROPRIATE ANTIDIURETIC HORMONE SECRETION [None]
  - MALAISE [None]
  - NAUSEA [None]
  - VOMITING [None]
